FAERS Safety Report 9587580 (Version 2)
Quarter: 2013Q4

REPORT INFORMATION
  Report Type: Spontaneous
  Country: US (occurrence: US)
  Receive Date: 20131003
  Receipt Date: 20131003
  Transmission Date: 20140711
  Serious: No
  Sender: FDA-Public Use
  Company Number: US-MYLANLABS-2013S1014323

PATIENT
  Age: 79 Year
  Sex: Female

DRUGS (2)
  1. PRAVASTATIN SODIUM TABLETS USP [Suspect]
     Indication: BLOOD CHOLESTEROL INCREASED
     Route: 048
     Dates: start: 201305, end: 201306
  2. METOPROLOL SUCCINATE [Suspect]

REACTIONS (1)
  - Urticaria [Recovered/Resolved]
